FAERS Safety Report 8959457 (Version 1)
Quarter: 2020Q3

REPORT INFORMATION
  Report Type: Report from Study
  Country: US (occurrence: US)
  Receive Date: 20121211
  Receipt Date: 20121211
  Transmission Date: 20201105
  Serious: Yes (Death, Life-Threatening, Hospitalization, Disabling)
  Sender: FDA-Public Use
  Company Number: US-JNJFOC-20070704331

PATIENT
  Age: 36 Year
  Sex: Female
  Weight: 45.36 kg

DRUGS (8)
  1. PREZISTA [Concomitant]
     Active Substance: DARUNAVIR ETHANOLATE
     Indication: HIV INFECTION
     Route: 048
     Dates: start: 20070606, end: 20070723
  2. ZIAGEN [Concomitant]
     Active Substance: ABACAVIR SULFATE
     Indication: HIV INFECTION
     Route: 065
     Dates: start: 20070606, end: 20070723
  3. INTELENCE [Suspect]
     Active Substance: ETRAVIRINE
     Route: 048
  4. INTELENCE [Suspect]
     Active Substance: ETRAVIRINE
     Indication: HIV INFECTION
     Dosage: TEMPORARY STOP
     Route: 048
     Dates: start: 20070615, end: 20070723
  5. MK?0518 [Concomitant]
     Active Substance: RALTEGRAVIR POTASSIUM
     Indication: HIV INFECTION
     Dosage: TEMPORARY STOP
     Route: 048
     Dates: start: 20070615, end: 20070710
  6. EPIVIR [Concomitant]
     Active Substance: LAMIVUDINE
     Indication: HIV INFECTION
     Route: 065
  7. NORVIR [Concomitant]
     Active Substance: RITONAVIR
     Indication: HIV INFECTION
     Route: 048
     Dates: start: 20070606, end: 20070723
  8. ZOVIRAX [Concomitant]
     Active Substance: ACYCLOVIR
     Indication: ORAL HERPES
     Route: 061
     Dates: start: 20070810, end: 20071004

REACTIONS (5)
  - Pancytopenia [Unknown]
  - Pneumonia [Recovered/Resolved]
  - Death [Fatal]
  - Acute kidney injury [Unknown]
  - Multiple organ dysfunction syndrome [Unknown]

NARRATIVE: CASE EVENT DATE: 20070710
